FAERS Safety Report 8005109-1 (Version None)
Quarter: 2011Q4

REPORT INFORMATION
  Report Type: 
  Country: None (occurrence: None)
  Receive Date: 20111223
  Receipt Date: 20111216
  Transmission Date: 20120403
  Serious: Yes (Hospitalization)
  Sender: FDA-Public Use
  Company Number: US-VERTEX PHARMACEUTICALS INC.-AE-2011-005239

PATIENT
  Sex: Female

DRUGS (8)
  1. PEGASYS [Concomitant]
     Indication: HEPATITIS C
     Route: 058
     Dates: start: 20111006
  2. POTASSIUM [Concomitant]
  3. METFORMIN HCL [Concomitant]
  4. INCIVEK [Suspect]
     Indication: HEPATITIS C
     Route: 048
     Dates: start: 20111006
  5. AMITRIPTYLINE [Concomitant]
  6. RIBAVIRIN [Concomitant]
     Indication: HEPATITIS C
     Route: 048
     Dates: start: 20111006
  7. PLAVIX [Concomitant]
  8. AMLODIPINE [Concomitant]

REACTIONS (5)
  - ANAEMIA [None]
  - BLOOD CALCIUM DECREASED [None]
  - BLOOD SODIUM DECREASED [None]
  - SYNCOPE [None]
  - BLOOD POTASSIUM DECREASED [None]
